FAERS Safety Report 4913619-6 (Version None)
Quarter: 2006Q1

REPORT INFORMATION
  Report Type: 
  Country: None (occurrence: None)
  Receive Date: 20060213
  Receipt Date: 20060130
  Transmission Date: 20060701
  Serious: Yes (Hospitalization)
  Sender: FDA-Public Use
  Company Number: ERP06000018

PATIENT
  Age: 55 Year
  Sex: Male

DRUGS (4)
  1. DANTRIUM [Suspect]
     Indication: MUSCLE SPASTICITY
     Dosage: 175 MG, DAILY, ORAL
     Route: 048
     Dates: start: 19800101
  2. PRAVASTATIN [Suspect]
     Indication: HYPERCHOLESTEROLAEMIA
     Dosage: 20 MG, DAILY
     Dates: start: 19980101
  3. CELECTOL [Suspect]
     Indication: HYPERTENSION
     Dates: start: 20051101
  4. VISKEN [Concomitant]

REACTIONS (5)
  - CALCINOSIS [None]
  - GASTROINTESTINAL MOTILITY DISORDER [None]
  - PANCREATIC DISORDER [None]
  - PANCREATIC DUCT DILATATION [None]
  - PANCREATITIS [None]
